FAERS Safety Report 5087692-1 (Version None)
Quarter: 2006Q3

REPORT INFORMATION
  Report Type: 
  Country: None (occurrence: None)
  Receive Date: 20060822
  Receipt Date: 20060822
  Transmission Date: 20061208
  Serious: Yes (Other)
  Sender: FDA-Public Use
  Company Number: None

PATIENT
  Sex: Female
  Weight: 78 kg

DRUGS (2)
  1. GEMCITABINE [Suspect]
     Indication: ADENOCARCINOMA PANCREAS
     Dosage: 4164 MG
     Dates: start: 20060802
  2. MS CONTIN [Concomitant]

REACTIONS (10)
  - ABDOMINAL PAIN [None]
  - APNOEA [None]
  - BLOOD POTASSIUM DECREASED [None]
  - CONSTIPATION [None]
  - HAEMATOCRIT DECREASED [None]
  - IMPAIRED GASTRIC EMPTYING [None]
  - NAUSEA [None]
  - RENAL FAILURE ACUTE [None]
  - SOMNOLENCE [None]
  - VOMITING [None]
